FAERS Safety Report 5735759-4 (Version None)
Quarter: 2008Q2

REPORT INFORMATION
  Report Type: 
  Country: None (occurrence: None)
  Receive Date: 20080513
  Receipt Date: 20080509
  Transmission Date: 20081010
  Serious: Yes (Other)
  Sender: FDA-Public Use
  Company Number: FR-BRISTOL-MYERS SQUIBB COMPANY-14184691

PATIENT
  Sex: Male

DRUGS (1)
  1. APROVEL TABS 150 MG [Suspect]

REACTIONS (1)
  - TOXIC SKIN ERUPTION [None]
